FAERS Safety Report 16805206 (Version 1)
Quarter: 2019Q3

REPORT INFORMATION
  Report Type: Report from Study
  Country: CA (occurrence: CA)
  Receive Date: 20190913
  Receipt Date: 20190913
  Transmission Date: 20191005
  Serious: Yes (Other)
  Sender: FDA-Public Use
  Company Number: PHHY2018CA170160

PATIENT
  Age: 39 Year
  Sex: Male

DRUGS (1)
  1. SANDOSTATIN LAR DEPOT [Suspect]
     Active Substance: OCTREOTIDE ACETATE
     Indication: CARCINOID TUMOUR
     Dosage: 30 MG, QMO (EVERY 4 WEEKS)
     Route: 030
     Dates: start: 20181121

REACTIONS (6)
  - Hypertension [Unknown]
  - Diarrhoea [Recovered/Resolved]
  - Thrombosis [Unknown]
  - Pain in extremity [Unknown]
  - Muscle spasms [Unknown]
  - Needle issue [Unknown]

NARRATIVE: CASE EVENT DATE: 20181121
